FAERS Safety Report 15504204 (Version 1)
Quarter: 2018Q4

REPORT INFORMATION
  Report Type: Spontaneous
  Country: ES (occurrence: ES)
  Receive Date: 20181016
  Receipt Date: 20181016
  Transmission Date: 20190205
  Serious: Yes (Other)
  Sender: FDA-Public Use
  Company Number: ES-ABBVIE-18K-144-2513998-00

PATIENT
  Age: 54 Year
  Sex: Male

DRUGS (1)
  1. VENETOCLAX. [Suspect]
     Active Substance: VENETOCLAX
     Indication: BLASTIC PLASMACYTOID DENDRITIC CELL NEOPLASIA
     Route: 048
     Dates: start: 20180704, end: 20180917

REACTIONS (2)
  - Blastic plasmacytoid dendritic cell neoplasia [Unknown]
  - Off label use [Unknown]

NARRATIVE: CASE EVENT DATE: 20180704
